FAERS Safety Report 8697000 (Version 2)
Quarter: 2012Q4

REPORT INFORMATION
  Report Type: Report from Study
  Country: JP (occurrence: JP)
  Receive Date: 20120801
  Receipt Date: 20120828
  Transmission Date: 20130627
  Serious: Yes (Death, Hospitalization)
  Sender: FDA-Public Use
  Company Number: JP-PFIZER INC-2012181951

PATIENT
  Age: 85 Year
  Sex: Male
  Weight: 57.7 kg

DRUGS (4)
  1. TEMSIROLIMUS [Suspect]
     Indication: METASTATIC RENAL CELL CARCINOMA
     Dosage: 25 mg, weekly
     Route: 042
     Dates: start: 20110226
  2. TEMSIROLIMUS [Suspect]
     Dosage: 25 mg, weekly
     Route: 042
     Dates: start: 20110305
  3. TEMSIROLIMUS [Suspect]
     Dosage: 25 mg, weekly
     Route: 042
     Dates: start: 20110326, end: 20110909
  4. TEMSIROLIMUS [Suspect]
     Dosage: 25 mg, weekly
     Route: 042
     Dates: start: 20110924, end: 20111001

REACTIONS (3)
  - Disease progression [Fatal]
  - Metastatic renal cell carcinoma [Fatal]
  - Respiratory tract inflammation [Recovering/Resolving]
